FAERS Safety Report 23228560 (Version 2)
Quarter: 2024Q3

REPORT INFORMATION
  Report Type: Spontaneous
  Country: GB (occurrence: GB)
  Receive Date: 20231125
  Receipt Date: 20240823
  Transmission Date: 20241017
  Serious: Yes (Other)
  Sender: JOHNSON AND JOHNSON
  Company Number: GB-JNJFOC-20231148053

PATIENT
  Sex: Male

DRUGS (1)
  1. XYLOMETAZOLINE HYDROCHLORIDE [Suspect]
     Active Substance: XYLOMETAZOLINE HYDROCHLORIDE
     Indication: Nasal obstruction
     Dosage: MORE THAN 8 YEARS EVERY DAY
     Route: 065

REACTIONS (6)
  - Drug dependence [Unknown]
  - Dyspnoea [Unknown]
  - Feeling abnormal [Unknown]
  - Stress [Unknown]
  - Initial insomnia [Unknown]
  - Nervousness [Unknown]
